FAERS Safety Report 25483416 (Version 2)
Quarter: 2025Q3

REPORT INFORMATION
  Report Type: Spontaneous
  Country: US (occurrence: US)
  Receive Date: 20250626
  Receipt Date: 20250701
  Transmission Date: 20251021
  Serious: No
  Sender: BAYER HEALTHCARE PHARMACEUTICALS INC.
  Company Number: US-BAYER-2025A084620

PATIENT
  Sex: Female

DRUGS (1)
  1. ESTRADIOL [Suspect]
     Active Substance: ESTRADIOL
     Route: 062
     Dates: start: 202506

REACTIONS (4)
  - Hot flush [Not Recovered/Not Resolved]
  - Dizziness [None]
  - Anxiety [None]
  - Nausea [None]

NARRATIVE: CASE EVENT DATE: 20250601
